FAERS Safety Report 14827060 (Version 2)
Quarter: 2018Q2

REPORT INFORMATION
  Report Type: Report from Study
  Country: IT (occurrence: IT)
  Receive Date: 20180430
  Receipt Date: 20180517
  Transmission Date: 20180711
  Serious: Yes (Hospitalization)
  Sender: FDA-Public Use
  Company Number: IT-PFIZER INC-2018171140

PATIENT
  Age: 48 Year
  Sex: Female
  Weight: 50.5 kg

DRUGS (2)
  1. GEMCITABINE HYDROCHLORIDE. [Suspect]
     Active Substance: GEMCITABINE HYDROCHLORIDE
     Indication: DUCTAL ADENOCARCINOMA OF PANCREAS
     Dosage: 1500 MG, UNK
     Route: 065
     Dates: start: 20180216, end: 20180216
  2. ABRAXANE [Suspect]
     Active Substance: PACLITAXEL
     Indication: DUCTAL ADENOCARCINOMA OF PANCREAS
     Dosage: 187.5 MG, UNK
     Route: 041
     Dates: start: 20180216, end: 20180216

REACTIONS (2)
  - Intestinal obstruction [Recovered/Resolved with Sequelae]
  - Pulmonary embolism [Recovered/Resolved with Sequelae]

NARRATIVE: CASE EVENT DATE: 20180225
